FAERS Safety Report 13585930 (Version 2)
Quarter: 2021Q2

REPORT INFORMATION
  Report Type: Spontaneous
  Country: US (occurrence: US)
  Receive Date: 20170526
  Receipt Date: 20210616
  Transmission Date: 20210716
  Serious: No
  Sender: FDA-Public Use
  Company Number: US-BAXALTA-2017BLT004318

PATIENT
  Age: 58 Year
  Sex: Female
  Weight: 53.06 kg

DRUGS (1)
  1. GAMMAGARD LIQUID [Suspect]
     Active Substance: HUMAN IMMUNOGLOBULIN G
     Indication: IMMUNOGLOBULINS DECREASED
     Dosage: 15 G, 1X A WEEK
     Route: 058
     Dates: start: 2007

REACTIONS (8)
  - Neuralgia [Unknown]
  - Hepatic enzyme increased [Unknown]
  - Blood urine present [Recovering/Resolving]
  - Arthralgia [Unknown]
  - Rash [Unknown]
  - Protein urine present [Recovering/Resolving]
  - White blood cell count decreased [Recovering/Resolving]
  - Adverse drug reaction [Unknown]

NARRATIVE: CASE EVENT DATE: 201703
